FAERS Safety Report 25931334 (Version 1)
Quarter: 2025Q4

REPORT INFORMATION
  Report Type: Spontaneous
  Country: None (occurrence: EU)
  Receive Date: 20251016
  Receipt Date: 20251016
  Transmission Date: 20260118
  Serious: Yes (Death)
  Sender: ALNYLAM PHARMACEUTICALS
  Company Number: EU-ALNYLAM PHARMACEUTICALS, INC.-ALN-2025-006426

PATIENT
  Age: 34 Year

DRUGS (2)
  1. LUMASIRAN [Suspect]
     Active Substance: LUMASIRAN
     Indication: Primary hyperoxaluria
     Dosage: UNK
     Route: 065
  2. VB6 [Concomitant]
     Indication: Primary hyperoxaluria
     Dosage: UNK
     Route: 065

REACTIONS (3)
  - Nervous system disorder [Fatal]
  - Lactic acidosis [Fatal]
  - Infection [Fatal]
